FAERS Safety Report 12633195 (Version 2)
Quarter: 2016Q3

REPORT INFORMATION
  Report Type: Spontaneous
  Country: US (occurrence: US)
  Receive Date: 20160808
  Receipt Date: 20160808
  Transmission Date: 20161109
  Serious: No
  Sender: FDA-Public Use
  Company Number: US-BEH-2016059129

PATIENT
  Age: 53 Year
  Sex: Male
  Weight: 89 kg

DRUGS (29)
  1. GABAPENTIN. [Concomitant]
     Active Substance: GABAPENTIN
  2. DULERA [Concomitant]
     Active Substance: FORMOTEROL FUMARATE DIHYDRATE\MOMETASONE FUROATE
  3. SINGULAIR [Concomitant]
     Active Substance: MONTELUKAST SODIUM
  4. ZOFRAN [Concomitant]
     Active Substance: ONDANSETRON HYDROCHLORIDE
  5. HIZENTRA [Suspect]
     Active Substance: HUMAN IMMUNOGLOBULIN G
     Indication: HYPOGLOBULINAEMIA
     Route: 058
  6. EPIPEN [Concomitant]
     Active Substance: EPINEPHRINE
  7. DEXILANT [Concomitant]
     Active Substance: DEXLANSOPRAZOLE
  8. HIZENTRA [Suspect]
     Active Substance: HUMAN IMMUNOGLOBULIN G
     Route: 058
  9. HYDROCODONE [Concomitant]
     Active Substance: HYDROCODONE
  10. SPIRIVA [Concomitant]
     Active Substance: TIOTROPIUM BROMIDE MONOHYDRATE
  11. MUCOMYST [Concomitant]
     Active Substance: ACETYLCYSTEINE
  12. DOXYCYCLINE. [Concomitant]
     Active Substance: DOXYCYCLINE
  13. HIZENTRA [Suspect]
     Active Substance: HUMAN IMMUNOGLOBULIN G
     Indication: SELECTIVE IGG SUBCLASS DEFICIENCY
     Route: 058
  14. HIZENTRA [Suspect]
     Active Substance: HUMAN IMMUNOGLOBULIN G
     Route: 058
  15. NORVIR [Concomitant]
     Active Substance: RITONAVIR
  16. TRAMADOL. [Concomitant]
     Active Substance: TRAMADOL
  17. ZYVOX [Concomitant]
     Active Substance: LINEZOLID
  18. DILAUDID [Concomitant]
     Active Substance: HYDROMORPHONE HYDROCHLORIDE
  19. LASIX [Concomitant]
     Active Substance: FUROSEMIDE
  20. SODIUM CHLORIDE. [Concomitant]
     Active Substance: SODIUM CHLORIDE
  21. CODEINE SULFATE. [Concomitant]
     Active Substance: CODEINE SULFATE
  22. BENZONATATE. [Concomitant]
     Active Substance: BENZONATATE
  23. ALBUTEROL SULFATE. [Concomitant]
     Active Substance: ALBUTEROL SULFATE
  24. BUMETANIDE. [Concomitant]
     Active Substance: BUMETANIDE
  25. ATIVAN [Concomitant]
     Active Substance: LORAZEPAM
  26. CORTISONE [Concomitant]
     Active Substance: CORTISONE\HYDROCORTISONE
  27. PREDNISONE. [Concomitant]
     Active Substance: PREDNISONE
  28. CLONAZEPAM. [Concomitant]
     Active Substance: CLONAZEPAM
  29. DUONEB [Concomitant]
     Active Substance: ALBUTEROL SULFATE\IPRATROPIUM BROMIDE

REACTIONS (1)
  - Bronchitis [Unknown]

NARRATIVE: CASE EVENT DATE: 20151219
